FAERS Safety Report 7038067-7 (Version None)
Quarter: 2010Q4

REPORT INFORMATION
  Report Type: 
  Country: None (occurrence: None)
  Receive Date: 20101011
  Receipt Date: 20101005
  Transmission Date: 20110411
  Serious: Yes (Death, Other)
  Sender: FDA-Public Use
  Company Number: IN-PFIZER INC-2010126542

PATIENT
  Age: 67 Year
  Sex: Male

DRUGS (7)
  1. MAGNEX [Suspect]
     Dosage: 3 G, 1X/DAY
     Route: 042
     Dates: start: 20100828, end: 20100901
  2. ATORVASTATIN [Concomitant]
  3. MIXTARD HUMAN 70/30 [Concomitant]
     Dosage: 40 IU
  4. RANITIDINE [Concomitant]
  5. AMLODIPINE [Concomitant]
  6. CLOPIDOGREL [Concomitant]
  7. ERYTHROPOIETIN [Concomitant]

REACTIONS (3)
  - BLOOD GLUCOSE INCREASED [None]
  - PNEUMONIA [None]
  - STEVENS-JOHNSON SYNDROME [None]
